FAERS Safety Report 7460954-6 (Version None)
Quarter: 2011Q2

REPORT INFORMATION
  Report Type: 
  Country: None (occurrence: None)
  Receive Date: 20110505
  Receipt Date: 20101221
  Transmission Date: 20111010
  Serious: No
  Sender: FDA-Public Use
  Company Number: US-BAYER-2011-026951

PATIENT
  Sex: Female

DRUGS (1)
  1. FINACEA [Suspect]
     Dosage: UNK
     Dates: end: 20101001

REACTIONS (1)
  - DRY SKIN [None]
